FAERS Safety Report 18957161 (Version 4)
Quarter: 2021Q2

REPORT INFORMATION
  Report Type: Report from Study
  Country: US (occurrence: US)
  Receive Date: 20210302
  Receipt Date: 20210501
  Transmission Date: 20210717
  Serious: Yes (Hospitalization)
  Sender: FDA-Public Use
  Company Number: US-ROCHE-2772812

PATIENT
  Age: 38 Year
  Sex: Female
  Weight: 76.2 kg

DRUGS (18)
  1. NAB?PACLITAXEL [Suspect]
     Active Substance: PACLITAXEL
     Indication: TRIPLE NEGATIVE BREAST CANCER
     Dosage: LAST DOSE OF NAB?PACLITAXEL ADMINISTERED ON 08/FEB/2021
     Route: 042
     Dates: start: 20210122, end: 20210208
  2. REMERON [Concomitant]
     Active Substance: MIRTAZAPINE
  3. TYLENOL [Concomitant]
     Active Substance: ACETAMINOPHEN
  4. MOTRIN [Concomitant]
     Active Substance: IBUPROFEN
  5. MORPHINE [Concomitant]
     Active Substance: MORPHINE
  6. ATEZOLIZUMAB. [Suspect]
     Active Substance: ATEZOLIZUMAB
     Indication: TRIPLE NEGATIVE BREAST CANCER
     Dosage: LAST DOSE OF ATEZOLIZUMAB ADMINISTERED ON 08/FEB/2021
     Route: 042
     Dates: start: 20210122, end: 20210208
  7. LMX (UNITED STATES) [Concomitant]
  8. FENTANYL. [Concomitant]
     Active Substance: FENTANYL
  9. CANNABIDIOL [Concomitant]
     Active Substance: CANNABIDIOL
  10. FLEXERIL [Concomitant]
     Active Substance: CYCLOBENZAPRINE HYDROCHLORIDE
  11. ZOFRAN [Concomitant]
     Active Substance: ONDANSETRON HYDROCHLORIDE
  12. DURAGESIC [Concomitant]
     Active Substance: FENTANYL
  13. PROMETHAZINE [Concomitant]
     Active Substance: PROMETHAZINE HYDROCHLORIDE
  14. EGANELISIB. [Suspect]
     Active Substance: EGANELISIB
     Indication: TRIPLE NEGATIVE BREAST CANCER
     Dosage: LAST DOSE OF IPI?549 ADMINISTERED ON 08/FEB/2021
     Route: 048
     Dates: start: 20210122, end: 20210208
  15. OXYCODONE [Concomitant]
     Active Substance: OXYCODONE
  16. LOMOTIL [Concomitant]
     Active Substance: ATROPINE SULFATE\DIPHENOXYLATE HYDROCHLORIDE
  17. CHRONULAC [Concomitant]
     Active Substance: LACTULOSE
  18. PERI?COLACE [Concomitant]
     Active Substance: CASANTHRANOL\DOCUSATE SODIUM

REACTIONS (2)
  - Transaminases [Recovered/Resolved]
  - Hepatic enzyme increased [Recovering/Resolving]

NARRATIVE: CASE EVENT DATE: 20210208
